FAERS Safety Report 14747469 (Version 2)
Quarter: 2018Q3

REPORT INFORMATION
  Report Type: Spontaneous
  Country: ZA (occurrence: ZA)
  Receive Date: 20180411
  Receipt Date: 20180702
  Transmission Date: 20181010
  Serious: Yes (Death, Hospitalization)
  Sender: FDA-Public Use
  Company Number: ZA-PFIZER INC-2018145254

PATIENT
  Age: 27 Year
  Sex: Female

DRUGS (6)
  1. ECOTRIN [Suspect]
     Active Substance: ASPIRIN
     Dosage: 81 MG, UNK
  2. PURESIS [Suspect]
     Active Substance: FUROSEMIDE
     Dosage: 40 MG, UNK
  3. ASPAVOR [Suspect]
     Active Substance: ATORVASTATIN
     Dosage: 20 MG, UNK
  4. SLOW?K [Suspect]
     Active Substance: POTASSIUM CHLORIDE
     Dosage: 600 MG, UNK
  5. EPILIZINE [Suspect]
     Active Substance: VALPROATE SODIUM
     Dosage: 200 MG, UNK
  6. HUMALOG MIX50/50 [Suspect]
     Active Substance: INSULIN LISPRO

REACTIONS (3)
  - Cerebrovascular accident [Unknown]
  - Organ failure [Fatal]
  - Hypercoagulation [Unknown]

NARRATIVE: CASE EVENT DATE: 201803
